FAERS Safety Report 14412577 (Version 2)
Quarter: 2018Q1

REPORT INFORMATION
  Report Type: Spontaneous
  Country: US (occurrence: US)
  Receive Date: 20180119
  Receipt Date: 20180209
  Transmission Date: 20180509
  Serious: Yes (Hospitalization, Other)
  Sender: FDA-Public Use
  Company Number: US-SAOL THERAPEUTICS-2018SAO00003

PATIENT
  Age: 49 Year
  Sex: Male
  Weight: 72.56 kg

DRUGS (32)
  1. BACLOFEN. [Suspect]
     Active Substance: BACLOFEN
     Dosage: UNK
     Route: 037
     Dates: start: 20110729
  2. HYDROMORPHONE [Suspect]
     Active Substance: HYDROMORPHONE
     Dosage: 7.987 MG, \DAY
     Route: 037
     Dates: start: 20171204
  3. CYMBALTA [Concomitant]
     Active Substance: DULOXETINE HYDROCHLORIDE
     Dosage: 1 CAPSULES, UNK
     Route: 048
     Dates: start: 20170116
  4. CYMBALTA [Concomitant]
     Active Substance: DULOXETINE HYDROCHLORIDE
     Dosage: 2 CAPSULES, UNK
     Route: 048
     Dates: start: 20170417
  5. LOVAZA [Concomitant]
     Active Substance: OMEGA-3-ACID ETHYL ESTERS
     Dosage: UNK
     Route: 048
     Dates: start: 20110209
  6. NEURONTIN [Concomitant]
     Active Substance: GABAPENTIN
     Dosage: 2 CAPSULES, UNK
     Route: 048
     Dates: start: 20170116
  7. NEURONTIN [Concomitant]
     Active Substance: GABAPENTIN
     Dosage: 2 CAPSULES, UNK
     Route: 048
     Dates: start: 20170605
  8. BACLOFEN. [Suspect]
     Active Substance: BACLOFEN
     Indication: PAIN
     Dosage: 111.82 ?G, \DAY
     Route: 037
     Dates: start: 20171204
  9. HYDROMORPHONE [Suspect]
     Active Substance: HYDROMORPHONE
     Dosage: 10.541 MG, \DAY; MAX DOSE
     Route: 037
     Dates: start: 20171204
  10. CLONIDINE. [Suspect]
     Active Substance: CLONIDINE
     Dosage: 159.75 ?G, \DAY
     Route: 037
     Dates: start: 20171204
  11. CLONIDINE. [Suspect]
     Active Substance: CLONIDINE
     Dosage: 210.82 ?G, \DAY; MAX DOSE
     Route: 037
     Dates: start: 20171204
  12. MORPHINE IR [Concomitant]
     Active Substance: MORPHINE
     Dosage: 1 OR 2 TABLETS, UNK
     Route: 048
     Dates: start: 20150415
  13. BACLOFEN. [Suspect]
     Active Substance: BACLOFEN
     Indication: POST LAMINECTOMY SYNDROME
     Dosage: 147.58 ?G, \DAY; MAX DOSE
     Route: 037
     Dates: start: 20171204
  14. BUPIVACAINE. [Suspect]
     Active Substance: BUPIVACAINE
     Dosage: 6.325 MG, \DAY; MAX DOSE
     Route: 037
     Dates: start: 20171204
  15. LIDODERM [Concomitant]
     Active Substance: LIDOCAINE
     Dosage: 2 DOSAGE UNITS, UNK
     Route: 061
     Dates: start: 20150309
  16. MORPHINE IR [Concomitant]
     Active Substance: MORPHINE
     Dosage: 1 TABLETS, UNK
     Route: 048
     Dates: start: 20140828
  17. MORPHINE IR [Concomitant]
     Active Substance: MORPHINE
     Dosage: 1 OR 2 TABLETS, UNK
     Route: 048
     Dates: start: 20150908
  18. BACLOFEN. [Concomitant]
     Active Substance: BACLOFEN
     Dosage: 1 TABLETS, UNK
     Dates: start: 20171230
  19. BUPIVACAINE. [Suspect]
     Active Substance: BUPIVACAINE
     Dosage: 4.792 MG, \DAY
     Route: 037
     Dates: start: 20171204
  20. CYMBALTA [Concomitant]
     Active Substance: DULOXETINE HYDROCHLORIDE
     Dosage: 1 CAPSULES, UNK
     Route: 048
     Dates: start: 20150309
  21. FLECTOR 1.3 % PATCH [Concomitant]
     Active Substance: DICLOFENAC EPOLAMINE
     Dosage: 2 DOSAGE UNITS, UNK
     Route: 061
     Dates: start: 20150309
  22. MORPHINE IR [Concomitant]
     Active Substance: MORPHINE
     Dosage: 1 OR 2 TABLETS, UNK
     Route: 048
     Dates: start: 20170522
  23. MORPHINE IR [Concomitant]
     Active Substance: MORPHINE
     Dosage: 1 OR 2 TABLETS, UNK
     Route: 048
     Dates: start: 20171220
  24. SEROQUEL [Concomitant]
     Active Substance: QUETIAPINE FUMARATE
     Dosage: UNK
     Route: 048
     Dates: start: 20110209
  25. CYMBALTA [Concomitant]
     Active Substance: DULOXETINE HYDROCHLORIDE
     Dosage: 2 CAPSULES, UNK
     Route: 048
     Dates: start: 20170215
  26. CRESTOR [Concomitant]
     Active Substance: ROSUVASTATIN CALCIUM
     Dosage: UNK
     Route: 048
     Dates: start: 20110209
  27. MORPHINE IR [Concomitant]
     Active Substance: MORPHINE
     Dosage: 1 OR 2 TABLETS, UNK
     Route: 048
     Dates: start: 20160202
  28. CYMBALTA [Concomitant]
     Active Substance: DULOXETINE HYDROCHLORIDE
     Dosage: 1 CAPSULES, UNK
     Route: 048
     Dates: start: 20171129
  29. MORPHINE IR [Concomitant]
     Active Substance: MORPHINE
     Dosage: 1 OR 2 TABLETS, UNK
     Route: 048
     Dates: start: 20170905
  30. NEURONTIN [Concomitant]
     Active Substance: GABAPENTIN
     Dosage: 2 CAPSULES, UNK
     Route: 048
     Dates: start: 20150309
  31. XANAX [Concomitant]
     Active Substance: ALPRAZOLAM
     Dosage: UNK
     Route: 048
     Dates: start: 20110209
  32. LASIX [Concomitant]
     Active Substance: FUROSEMIDE
     Dosage: UNK
     Route: 048
     Dates: start: 20110209

REACTIONS (30)
  - Device malfunction [Recovered/Resolved]
  - Nerve injury [Unknown]
  - Back pain [Recovering/Resolving]
  - Anxiety [Unknown]
  - Sacroiliitis [Unknown]
  - Off label use [Unknown]
  - Erectile dysfunction [Unknown]
  - Cardiac murmur [Unknown]
  - Hypoaesthesia [Unknown]
  - Weight increased [Unknown]
  - Tenderness [None]
  - Peripheral swelling [Unknown]
  - Poor quality sleep [Recovering/Resolving]
  - Radiculopathy [Unknown]
  - Drug withdrawal syndrome [Recovered/Resolved]
  - Dizziness [Unknown]
  - Asthenia [Unknown]
  - Blood testosterone increased [Unknown]
  - Skin lesion [Unknown]
  - Influenza like illness [Recovered/Resolved]
  - Malaise [Recovered/Resolved]
  - Post laminectomy syndrome [Unknown]
  - Gait disturbance [None]
  - Neuralgia [Unknown]
  - Fall [Unknown]
  - Post procedural haematoma [None]
  - Snoring [Unknown]
  - Pain in extremity [Recovering/Resolving]
  - Intervertebral disc degeneration [Unknown]
  - Blood pressure increased [Unknown]

NARRATIVE: CASE EVENT DATE: 201712
